FAERS Safety Report 5592195-1 (Version None)
Quarter: 2008Q1

REPORT INFORMATION
  Report Type: 
  Country: None (occurrence: None)
  Receive Date: 20080115
  Receipt Date: 20071004
  Transmission Date: 20080703
  Serious: No
  Sender: FDA-Public Use
  Company Number: US-ABBOTT-07P-163-0419607-00

PATIENT
  Sex: Female

DRUGS (1)
  1. ADVICOR [Suspect]
     Indication: DRUG USE FOR UNKNOWN INDICATION
     Dates: start: 20071003

REACTIONS (4)
  - ERYTHEMA [None]
  - FLUSHING [None]
  - PRURITUS [None]
  - SKIN WARM [None]
